FAERS Safety Report 12660460 (Version 3)
Quarter: 2017Q1

REPORT INFORMATION
  Report Type: Report from Study
  Country: AU (occurrence: AU)
  Receive Date: 20160817
  Receipt Date: 20170306
  Transmission Date: 20170428
  Serious: Yes (Hospitalization, Other)
  Sender: FDA-Public Use
  Company Number: AU-BRISTOL-MYERS SQUIBB COMPANY-BMS-2016-040420

PATIENT
  Age: 69 Year
  Sex: Female
  Weight: 64.1 kg

DRUGS (8)
  1. PROMETHAZINE [Concomitant]
     Active Substance: PROMETHAZINE\PROMETHAZINE HYDROCHLORIDE
     Indication: RASH PAPULAR
     Dosage: 10 MG, UNK
     Route: 048
     Dates: start: 20160225, end: 20160502
  2. OXYCODONE [Concomitant]
     Active Substance: OXYCODONE
     Indication: PRODUCT USED FOR UNKNOWN INDICATION
     Dosage: 5.000 MG, UNK
     Route: 048
     Dates: start: 20160424
  3. ONDANSETRON [Concomitant]
     Active Substance: ONDANSETRON
     Indication: NAUSEA
     Dosage: 4 MG, UNK
     Route: 048
     Dates: start: 20160425, end: 20160425
  4. NIVOLUMAB [Suspect]
     Active Substance: NIVOLUMAB
     Indication: MALIGNANT MELANOMA
     Dosage: 1 MG/KG, QD
     Route: 042
     Dates: start: 20160202, end: 20160405
  5. IPILIMUMAB [Suspect]
     Active Substance: IPILIMUMAB
     Indication: MALIGNANT MELANOMA
     Dosage: 3 MG/KG, UNK
     Route: 042
     Dates: start: 20160202, end: 20160405
  6. BOOSTRIX [Concomitant]
     Active Substance: TETANUS TOXOID, REDUCED DIPHTHERIA TOXOID AND ACELLULAR PERTUSSIS VACCINE, ADSORBED ANTIGENS
     Indication: PRODUCT USED FOR UNKNOWN INDICATION
     Dosage: 1 DF: 1.000 VIAL DOSING UNIT, UNK
     Route: 030
     Dates: start: 20160424, end: 20160424
  7. MAGNESIUM ASPARTATE [Concomitant]
     Active Substance: MAGNESIUM ASPARTATE
     Indication: PRODUCT USED FOR UNKNOWN INDICATION
     Dosage: 2 TAB: 2 TAB DOSING UNIT
     Route: 048
     Dates: start: 20160425, end: 20160429
  8. PARACETAMOL [Concomitant]
     Active Substance: ACETAMINOPHEN
     Indication: PRODUCT USED FOR UNKNOWN INDICATION
     Dosage: 1 G, UNK
     Route: 048
     Dates: start: 20160424, end: 20160425

REACTIONS (4)
  - Transaminases increased [Not Recovered/Not Resolved]
  - Autoimmune hepatitis [Recovered/Resolved]
  - Clavicle fracture [Recovered/Resolved]
  - Syncope [Recovered/Resolved]

NARRATIVE: CASE EVENT DATE: 20160424
